FAERS Safety Report 21667557 (Version 2)
Quarter: 2023Q2

REPORT INFORMATION
  Report Type: Spontaneous
  Country: GB (occurrence: GB)
  Receive Date: 20221201
  Receipt Date: 20230414
  Transmission Date: 20230722
  Serious: Yes (Hospitalization, Other)
  Sender: FDA-Public Use
  Company Number: GB-SA-2022SA484945

PATIENT
  Age: 50 Year
  Sex: Female

DRUGS (27)
  1. DOCETAXEL [Suspect]
     Active Substance: DOCETAXEL
     Indication: Breast cancer metastatic
     Dosage: 130 MG, Q3W
     Route: 042
     Dates: start: 20150630, end: 20151106
  2. TRASTUZUMAB [Suspect]
     Active Substance: TRASTUZUMAB
     Indication: Breast cancer metastatic
     Dosage: 600 MG, Q3W
     Route: 058
     Dates: start: 20150629
  3. PERTUZUMAB [Suspect]
     Active Substance: PERTUZUMAB
     Indication: Breast cancer metastatic
     Dosage: 840 MG, Q3W
     Route: 042
     Dates: start: 20150629
  4. DIAZEPAM [Concomitant]
     Active Substance: DIAZEPAM
     Dosage: 6.5 MG, QD
     Route: 048
     Dates: start: 201612, end: 201712
  5. DIAZEPAM [Concomitant]
     Active Substance: DIAZEPAM
     Dosage: 4 MG, QD
     Route: 048
     Dates: start: 201709, end: 201712
  6. DIAZEPAM [Concomitant]
     Active Substance: DIAZEPAM
     Dosage: 3.5 MG, QD
     Route: 048
     Dates: start: 201712
  7. LIOTHYRONINE [Concomitant]
     Active Substance: LIOTHYRONINE
     Dosage: 10 MG, QD
     Route: 048
     Dates: start: 20160927
  8. LITHIUM [Concomitant]
     Active Substance: LITHIUM
     Dosage: 400 MG, QD
     Route: 048
     Dates: start: 20161202, end: 201709
  9. LITHIUM [Concomitant]
     Active Substance: LITHIUM
     Dosage: 500 MG, QD
     Route: 048
     Dates: start: 201709, end: 201712
  10. LITHIUM [Concomitant]
     Active Substance: LITHIUM
     Dosage: 400 MG, QD
     Route: 048
     Dates: start: 201712, end: 20181222
  11. LITHIUM [Concomitant]
     Active Substance: LITHIUM
     Dosage: 250 MG, QD
     Route: 048
     Dates: start: 20181223, end: 20190312
  12. LITHIUM [Concomitant]
     Active Substance: LITHIUM
     Dosage: 150 MG, QD
     Route: 048
     Dates: start: 20190313
  13. MIRTAZAPINE [Concomitant]
     Active Substance: MIRTAZAPINE
     Dosage: 15 MG, QD
     Route: 048
     Dates: end: 2016
  14. MIRTAZAPINE [Concomitant]
     Active Substance: MIRTAZAPINE
     Dosage: 30 MG, QD
     Route: 048
     Dates: start: 2016, end: 20160715
  15. MIRTAZAPINE [Concomitant]
     Active Substance: MIRTAZAPINE
     Dosage: 15 MG, QD
     Route: 048
     Dates: start: 20160716, end: 201612
  16. MIRTAZAPINE [Concomitant]
     Active Substance: MIRTAZAPINE
     Dosage: 30 MG, QD
     Route: 048
     Dates: start: 201612, end: 201803
  17. MIRTAZAPINE [Concomitant]
     Active Substance: MIRTAZAPINE
     Dosage: 15 MG, QD
     Route: 048
     Dates: start: 201709, end: 201712
  18. MIRTAZAPINE [Concomitant]
     Active Substance: MIRTAZAPINE
     Dosage: 7.5 MG, QD
     Route: 048
     Dates: start: 201712, end: 201803
  19. MIRTAZAPINE [Concomitant]
     Active Substance: MIRTAZAPINE
     Dosage: 3.75 MG, QD
     Route: 048
     Dates: start: 201803, end: 201807
  20. PYRIDOXINE [Concomitant]
     Active Substance: PYRIDOXINE
     Indication: Neuropathy peripheral
     Dosage: 50 MG
     Route: 048
     Dates: start: 20150807
  21. SERTRALINE [Concomitant]
     Active Substance: SERTRALINE HYDROCHLORIDE
     Dosage: 50 MG, QD
     Route: 048
     Dates: start: 201601
  22. SERTRALINE [Concomitant]
     Active Substance: SERTRALINE HYDROCHLORIDE
     Dosage: 100 MG, QD
     Route: 048
     Dates: start: 20160715, end: 201612
  23. SERTRALINE [Concomitant]
     Active Substance: SERTRALINE HYDROCHLORIDE
     Dosage: 75 MG, QD
     Route: 048
     Dates: start: 201612, end: 201702
  24. SERTRALINE [Concomitant]
     Active Substance: SERTRALINE HYDROCHLORIDE
     Dosage: 62.5 MG, QD
     Route: 048
     Dates: start: 201702, end: 201709
  25. SERTRALINE [Concomitant]
     Active Substance: SERTRALINE HYDROCHLORIDE
     Dosage: 50 MG, QD
     Route: 048
     Dates: start: 201709, end: 201711
  26. SERTRALINE [Concomitant]
     Active Substance: SERTRALINE HYDROCHLORIDE
     Dosage: 37.5 MG, QD
     Route: 048
     Dates: start: 201711, end: 201712
  27. SERTRALINE [Concomitant]
     Active Substance: SERTRALINE HYDROCHLORIDE
     Dosage: 12.5 MG, QD
     Route: 048
     Dates: start: 201712, end: 201803

REACTIONS (4)
  - Neutropenic sepsis [Recovered/Resolved]
  - Breast pain [Recovered/Resolved]
  - Osteopenia [Not Recovered/Not Resolved]
  - Coccydynia [Recovered/Resolved]

NARRATIVE: CASE EVENT DATE: 20150709
